FAERS Safety Report 8145071-4 (Version None)
Quarter: 2012Q1

REPORT INFORMATION
  Report Type: 
  Country: None (occurrence: None)
  Receive Date: 20120217
  Receipt Date: 20120207
  Transmission Date: 20120608
  Serious: Yes (Other)
  Sender: FDA-Public Use
  Company Number: PHHY2012BR011570

PATIENT
  Age: 78 Year
  Sex: Female

DRUGS (4)
  1. EXELON [Suspect]
     Indication: DEMENTIA ALZHEIMER'S TYPE
     Dosage: 4.6 MG/ 24 HOURS
     Route: 062
  2. EXELON [Suspect]
     Dosage: 2 MG, BID
  3. EXELON [Suspect]
     Dosage: 4.6 MG/ 24 HOURS
     Route: 062
  4. EXELON [Suspect]
     Dosage: 9.5 MG/24 HOURS
     Route: 062

REACTIONS (5)
  - CONFUSIONAL STATE [None]
  - DELIRIUM [None]
  - AGITATION [None]
  - FEAR [None]
  - FATIGUE [None]
